FAERS Safety Report 13023442 (Version 1)
Quarter: 2016Q4

REPORT INFORMATION
  Report Type: Spontaneous
  Country: US (occurrence: US)
  Receive Date: 20161212
  Receipt Date: 20161212
  Transmission Date: 20170207
  Serious: No
  Sender: FDA-Public Use
  Company Number: None

PATIENT
  Age: 67 Year
  Sex: Female
  Weight: 83.2 kg

DRUGS (5)
  1. NASAL SPRAY [Suspect]
     Active Substance: UNSPECIFIED INGREDIENT
     Indication: MULTIPLE ALLERGIES
     Dosage: ?          QUANTITY:2 INHALATION(S);?
     Route: 055
     Dates: start: 20030101, end: 20161209
  2. MULTIVITAMIN FOR HER 50+ [Concomitant]
  3. VITAMIN D3 [Concomitant]
     Active Substance: CHOLECALCIFEROL
  4. GLUCOSAMINE HCL 1500 WITH MSM [Concomitant]
  5. EQUALINE 2 IN 1 PROBIOTIC [Concomitant]

REACTIONS (4)
  - Reaction to preservatives [None]
  - Idiosyncratic drug reaction [None]
  - Increased viscosity of upper respiratory secretion [None]
  - Paranasal sinus hypersecretion [None]

NARRATIVE: CASE EVENT DATE: 20030502
